FAERS Safety Report 9647535 (Version 2)
Quarter: 2013Q4

REPORT INFORMATION
  Report Type: Other
  Country: JP (occurrence: JP)
  Receive Date: 20131028
  Receipt Date: 20131028
  Transmission Date: 20140711
  Serious: Yes (Hospitalization, Other)
  Sender: FDA-Public Use
  Company Number: JP-ACTELION-A-CH2010-37919

PATIENT
  Age: 75 Year
  Sex: Female
  Weight: 48 kg

DRUGS (11)
  1. TRACLEER [Suspect]
     Indication: SKIN ULCER
     Dosage: 187 MG, QD
     Route: 048
     Dates: start: 20081205, end: 20100601
  2. TRACLEER [Suspect]
     Dosage: 62.5 MG, QD
     Route: 048
     Dates: start: 20060905, end: 20070925
  3. TRACLEER [Suspect]
     Dosage: 62.5 MG, QD
     Route: 048
     Dates: start: 20080617, end: 20080901
  4. TRACLEER [Suspect]
     Dosage: 125 MG, QD
     Route: 048
     Dates: start: 20080902, end: 20081204
  5. PREDNISOLONE [Suspect]
     Dosage: UNK
     Dates: start: 20030328
  6. BERAPROST SODIUM [Suspect]
     Dosage: UNK
     Dates: start: 200406
  7. SARPOGRELATE HYDROCHLORIDE [Suspect]
     Dosage: UNK
     Dates: start: 200406
  8. RABEPRAZOLE SODIUM [Suspect]
     Dosage: UNK
     Dates: start: 200403
  9. CANDESARTAN CILEXETIL [Suspect]
     Dosage: UNK
     Dates: start: 2003
  10. ALFACALCIDOL [Suspect]
     Dosage: UNK
     Dates: start: 2000
  11. URSODEOXYCHOLIC ACID [Suspect]
     Dosage: UNK
     Dates: start: 20080201

REACTIONS (21)
  - Ascites [Recovering/Resolving]
  - Renal impairment [Unknown]
  - Pleural effusion [Recovering/Resolving]
  - Pericardial effusion [Recovering/Resolving]
  - Oedema [Recovering/Resolving]
  - Abdominal distension [Recovering/Resolving]
  - Blood potassium increased [Unknown]
  - Hepatic function abnormal [Not Recovered/Not Resolved]
  - Creatinine renal clearance decreased [Unknown]
  - Hypophagia [Unknown]
  - Hypoproteinaemia [Unknown]
  - Hypoalbuminaemia [Unknown]
  - Anaemia [Unknown]
  - Aspartate aminotransferase increased [Not Recovered/Not Resolved]
  - Alanine aminotransferase increased [Not Recovered/Not Resolved]
  - Blood alkaline phosphatase increased [Not Recovered/Not Resolved]
  - Haematocrit decreased [Unknown]
  - Haemoglobin decreased [Unknown]
  - Red blood cell count decreased [Unknown]
  - Oedema peripheral [Unknown]
  - Dyspnoea [Recovering/Resolving]
